FAERS Safety Report 11441577 (Version 3)
Quarter: 2015Q4

REPORT INFORMATION
  Report Type: Report from Study
  Country: JP (occurrence: JP)
  Receive Date: 20150901
  Receipt Date: 20151027
  Transmission Date: 20160304
  Serious: Yes (Hospitalization)
  Sender: FDA-Public Use
  Company Number: JP-ROCHE-1625762

PATIENT
  Age: 66 Year
  Sex: Female
  Weight: 65 kg

DRUGS (34)
  1. PREDNISOLONE. [Suspect]
     Active Substance: PREDNISOLONE
     Indication: TAKAYASU^S ARTERITIS
     Route: 048
     Dates: start: 20140605, end: 20140702
  2. PREDNISOLONE. [Suspect]
     Active Substance: PREDNISOLONE
     Route: 048
     Dates: start: 20150512, end: 20150518
  3. PREDNISOLONE. [Suspect]
     Active Substance: PREDNISOLONE
     Route: 048
     Dates: start: 20150526, end: 20150601
  4. PREDNISOLONE. [Suspect]
     Active Substance: PREDNISOLONE
     Route: 048
     Dates: start: 20140911, end: 20141016
  5. PREDNISOLONE. [Suspect]
     Active Substance: PREDNISOLONE
     Route: 048
     Dates: start: 20150616, end: 20150622
  6. PREDNISOLONE. [Suspect]
     Active Substance: PREDNISOLONE
     Route: 048
     Dates: start: 20150623
  7. WARFARIN [Concomitant]
     Active Substance: WARFARIN
     Indication: TAKAYASU^S ARTERITIS
     Dosage: THE BEGINNING OF DOSAGE DAY: BEFORE THE BEGINNING OF DOSAGE OF THE INVESTIGATION AL AGENT
     Route: 048
  8. ALDACTONE A [Concomitant]
     Active Substance: SPIRONOLACTONE
     Indication: CARDIAC FAILURE CHRONIC
     Dosage: THE BEGINNING OF DOSAGE DAY: BEFORE THE BEGINNING OF DOSAGE OF THE INVESTIGATION AL AGENT
     Route: 048
  9. FEBURIC [Concomitant]
     Active Substance: FEBUXOSTAT
     Indication: HYPERURICAEMIA
     Dosage: THE BEGINNING OF DOSAGE DAY: BEFORE THE BEGINNING OF DOSAGE OF THE INVESTIGATION AL AGENT
     Route: 048
  10. TAKEPRON [Concomitant]
     Active Substance: LANSOPRAZOLE
     Indication: GASTRITIS PROPHYLAXIS
     Dosage: THE BEGINNING OF DOSAGE DAY: BEFORE THE BEGINNING OF DOSAGE OF THE INVESTIGATION AL AGENT
     Route: 048
  11. ALFAROL [Concomitant]
     Active Substance: ALFACALCIDOL
     Indication: OSTEOPOROSIS PROPHYLAXIS
     Dosage: THE BEGINNING OF DOSAGE DAY: BEFORE THE BEGINNING OF DOSAGE OF THE INVESTIGATION AL AGENT
     Route: 048
  12. PREDNISOLONE. [Suspect]
     Active Substance: PREDNISOLONE
     Route: 048
     Dates: start: 20141226, end: 20150309
  13. AMLODIN [Concomitant]
     Active Substance: AMLODIPINE BESYLATE
     Indication: HYPERTENSION
     Dosage: DRUG REPORTED AS AMLODIN OD?THE BEGINNING OF DOSAGE DAY: BEFORE THE BEGINNING OF DOSAGE OF THE INVES
     Route: 048
  14. GLUCONSAN K [Concomitant]
     Indication: HYPOKALAEMIA
     Route: 048
     Dates: start: 20150428
  15. SEIBULE [Concomitant]
     Active Substance: MIGLITOL
     Indication: DIABETES MELLITUS
     Route: 048
  16. PREDNISOLONE. [Suspect]
     Active Substance: PREDNISOLONE
     Route: 048
     Dates: start: 20141017, end: 20141119
  17. PREDNISOLONE. [Suspect]
     Active Substance: PREDNISOLONE
     Route: 048
     Dates: start: 20150602, end: 20150608
  18. HALFDIGOXIN [Concomitant]
     Active Substance: DIGOXIN
     Indication: CARDIAC FAILURE CHRONIC
     Dosage: THE BEGINNING OF DOSAGE DAY: BEFORE THE BEGINNING OF DOSAGE OF THE INVESTIGATION AL AGENT
     Route: 048
  19. MAINTATE [Concomitant]
     Active Substance: BISOPROLOL FUMARATE
     Indication: CARDIAC FAILURE CHRONIC
     Dosage: THE BEGINNING OF DOSAGE DAY: BEFORE THE BEGINNING OF DOSAGE OF THE INVESTIGATION AL AGENT
     Route: 048
  20. PREDNISOLONE. [Suspect]
     Active Substance: PREDNISOLONE
     Route: 048
     Dates: start: 20150402, end: 20150511
  21. PREDNISOLONE. [Suspect]
     Active Substance: PREDNISOLONE
     Route: 048
     Dates: start: 20150609, end: 20150615
  22. LASIX [Concomitant]
     Active Substance: FUROSEMIDE
     Indication: CARDIAC FAILURE CHRONIC
     Dosage: THE BEGINNING OF DOSAGE DAY: BEFORE THE BEGINNING OF DOSAGE OF THE INVESTIGATION AL AGENT
     Route: 048
  23. MYSLEE [Concomitant]
     Active Substance: ZOLPIDEM TARTRATE
     Indication: INSOMNIA
     Dosage: THE BEGINNING OF DOSAGE DAY: BEFORE THE BEGINNING OF DOSAGE OF THE INVESTIGATION AL AGENT
     Route: 048
  24. APIDRA [Concomitant]
     Active Substance: INSULIN GLULISINE
     Indication: DIABETES MELLITUS
     Dosage: 44 UNITS OF TOTAL AND THE BEGINNING OF DOSAGE DAYS: BEFORE THE BEGINNING OF DOSAGE OF THE INVESTIGAT
     Route: 058
  25. PREDNISOLONE. [Suspect]
     Active Substance: PREDNISOLONE
     Route: 048
     Dates: start: 20140807, end: 20140910
  26. PREDNISOLONE. [Suspect]
     Active Substance: PREDNISOLONE
     Route: 048
     Dates: start: 20150310, end: 20150401
  27. TOCILIZUMAB [Suspect]
     Active Substance: TOCILIZUMAB
     Indication: TAKAYASU^S ARTERITIS
     Dosage: DRUG NO. 241
     Route: 058
     Dates: start: 20150414
  28. PREDNISOLONE. [Suspect]
     Active Substance: PREDNISOLONE
     Route: 048
     Dates: start: 20150519, end: 20150525
  29. BONALON [Concomitant]
     Active Substance: ALENDRONATE SODIUM
     Indication: OSTEOPOROSIS PROPHYLAXIS
     Dosage: FORM:JEL, DRUG REPORTED ASBONALON JELLY?THE BEGINNING OF DOSAGE DAY: BEFORE THE BEGINNING OF DOSAGE
     Route: 048
  30. PREDNISOLONE. [Suspect]
     Active Substance: PREDNISOLONE
     Route: 048
     Dates: start: 20140703, end: 20140806
  31. PREDNISOLONE. [Suspect]
     Active Substance: PREDNISOLONE
     Route: 048
     Dates: start: 20141120, end: 20141225
  32. LIPITOR [Concomitant]
     Active Substance: ATORVASTATIN CALCIUM
     Indication: DYSLIPIDAEMIA
     Dosage: THE BEGINNING OF DOSAGE DAY: BEFORE THE BEGINNING OF DOSAGE OF THE INVESTIGATION AL AGENT
     Route: 048
  33. DEPROMEL [Concomitant]
     Active Substance: FLUVOXAMINE
     Indication: DYSTHYMIC DISORDER
     Dosage: THE BEGINNING OF DOSAGE DAY: BEFORE THE BEGINNING OF DOSAGE OF THE INVESTIGATION AL AGENT
     Route: 048
  34. JANUVIA [Concomitant]
     Active Substance: SITAGLIPTIN PHOSPHATE
     Indication: DIABETES MELLITUS
     Dosage: THE BEGINNING OF DOSAGE DAY: BEFORE THE BEGINNING OF DOSAGE OF THE INVESTIGATION AL AGENT
     Route: 048

REACTIONS (1)
  - Cataract [Not Recovered/Not Resolved]

NARRATIVE: CASE EVENT DATE: 20150625
